FAERS Safety Report 9606947 (Version 3)
Quarter: 2014Q1

REPORT INFORMATION
  Report Type: Report from Study
  Country: DE (occurrence: DE)
  Receive Date: 20131008
  Receipt Date: 20140221
  Transmission Date: 20141002
  Serious: Yes (Hospitalization)
  Sender: FDA-Public Use
  Company Number: DE-EXELIXIS-XL18413003369

PATIENT
  Age: 56 Year
  Sex: Male
  Weight: 83 kg

DRUGS (6)
  1. XL184 [Suspect]
     Indication: PROSTATE CANCER
     Dosage: 60 MG, QD
     Route: 048
     Dates: start: 20130703, end: 20130924
  2. XL184 [Suspect]
     Indication: PROSTATE CANCER
     Dosage: 10 MG, QD
     Route: 048
     Dates: start: 20130703, end: 20130924
  3. DENOSUMAB [Concomitant]
  4. ZOLADEX [Concomitant]
  5. CALCIUM + VITAMIN D3 [Concomitant]
  6. ROCALTROL [Concomitant]

REACTIONS (1)
  - Pharyngeal abscess [Recovered/Resolved]
